FAERS Safety Report 10600585 (Version 2)
Quarter: 2014Q4

REPORT INFORMATION
  Report Type: Spontaneous
  Country: US (occurrence: US)
  Receive Date: 20141124
  Receipt Date: 20141124
  Transmission Date: 20150529
  Serious: Yes (Hospitalization)
  Sender: FDA-Public Use
  Company Number: US-BRISTOL-MYERS SQUIBB COMPANY-21390273

PATIENT
  Age: 71 Year
  Sex: Female
  Weight: 97.5 kg

DRUGS (13)
  1. BYETTA [Suspect]
     Active Substance: EXENATIDE
     Indication: TYPE 2 DIABETES MELLITUS
     Route: 058
  2. TRICOR [Concomitant]
     Active Substance: FENOFIBRATE
  3. PROPRANOLOL [Concomitant]
     Active Substance: PROPRANOLOL\PROPRANOLOL HYDROCHLORIDE
  4. FENOFIBRATE. [Concomitant]
     Active Substance: FENOFIBRATE
  5. LISINOPRIL. [Concomitant]
     Active Substance: LISINOPRIL
  6. TRIAMTERENE + HCTZ [Concomitant]
  7. FLECAINIDE [Concomitant]
     Active Substance: FLECAINIDE
  8. DYAZIDE [Concomitant]
     Active Substance: HYDROCHLOROTHIAZIDE\TRIAMTERENE
  9. CRESTOR [Concomitant]
     Active Substance: ROSUVASTATIN CALCIUM
  10. BACLOFEN. [Concomitant]
     Active Substance: BACLOFEN
  11. RANITIDINE [Concomitant]
     Active Substance: RANITIDINE\RANITIDINE HYDROCHLORIDE
  12. FLUTICASONE [Concomitant]
     Active Substance: FLUTICASONE\FLUTICASONE PROPIONATE
  13. ZETIA [Concomitant]
     Active Substance: EZETIMIBE

REACTIONS (2)
  - VIIth nerve paralysis [Recovered/Resolved]
  - Blood glucose increased [Recovering/Resolving]

NARRATIVE: CASE EVENT DATE: 201409
